FAERS Safety Report 5679025-4 (Version None)
Quarter: 2008Q1

REPORT INFORMATION
  Report Type: 
  Country: None (occurrence: None)
  Receive Date: 20080321
  Receipt Date: 20080318
  Transmission Date: 20080703
  Serious: Yes (Other)
  Sender: FDA-Public Use
  Company Number: 2008S1002116

PATIENT
  Age: 20 Year
  Sex: Female

DRUGS (13)
  1. EZ PREP KIT [Suspect]
     Indication: COLONOSCOPY
     Dosage: 45 ML;X1;PO
     Route: 048
     Dates: start: 20080317, end: 20080318
  2. ABILIFY [Concomitant]
  3. EFFEXOR [Concomitant]
  4. FLEXERIL [Concomitant]
  5. NEXIUM [Concomitant]
  6. SINGULAIR [Concomitant]
  7. TOPAMAX [Concomitant]
  8. LAMICTAL [Concomitant]
  9. ADVAIR HFA [Concomitant]
  10. NIASPAN [Concomitant]
  11. INDERAL [Concomitant]
  12. AMITIZA [Concomitant]
  13. NABUTONE [Concomitant]

REACTIONS (4)
  - BLOOD PHOSPHORUS DECREASED [None]
  - HYPOAESTHESIA [None]
  - PARAESTHESIA [None]
  - VOMITING [None]
